FAERS Safety Report 15403780 (Version 1)
Quarter: 2018Q3

REPORT INFORMATION
  Report Type: Report from Study
  Country: GB (occurrence: GB)
  Receive Date: 20180919
  Receipt Date: 20180919
  Transmission Date: 20181010
  Serious: Yes (Hospitalization)
  Sender: FDA-Public Use
  Company Number: GB-ASTRAZENECA-2018SF19697

PATIENT
  Age: 24964 Day
  Sex: Male

DRUGS (27)
  1. MEDI4736 [Suspect]
     Active Substance: DURVALUMAB
     Indication: NON-SMALL CELL LUNG CANCER
     Dosage: 1500 MG
     Route: 042
     Dates: start: 20180501, end: 20180501
  2. MEDI4736 [Suspect]
     Active Substance: DURVALUMAB
     Indication: NON-SMALL CELL LUNG CANCER
     Dosage: 1500 MG
     Route: 042
     Dates: start: 20180626, end: 20180626
  3. AZD6738 [Suspect]
     Active Substance: CERALASERTIB
     Indication: SQUAMOUS CELL CARCINOMA OF HEAD AND NECK
     Dosage: 240 MG
     Route: 048
     Dates: start: 20180320, end: 20180320
  4. AZD6738 [Suspect]
     Active Substance: CERALASERTIB
     Indication: NON-SMALL CELL LUNG CANCER
     Dosage: 240 MG
     Route: 048
     Dates: start: 20180320, end: 20180320
  5. AZD6738 [Suspect]
     Active Substance: CERALASERTIB
     Indication: NON-SMALL CELL LUNG CANCER
     Dosage: 240 MG
     Route: 048
     Dates: start: 20180515, end: 20180528
  6. AZD6738 [Suspect]
     Active Substance: CERALASERTIB
     Indication: SQUAMOUS CELL CARCINOMA OF HEAD AND NECK
     Dosage: 240 MG
     Route: 048
     Dates: start: 20180420, end: 20180420
  7. MEDI4736 [Suspect]
     Active Substance: DURVALUMAB
     Indication: SQUAMOUS CELL CARCINOMA OF HEAD AND NECK
     Dosage: 1500 MG
     Route: 042
     Dates: start: 20180403, end: 20180403
  8. MEDI4736 [Suspect]
     Active Substance: DURVALUMAB
     Indication: NON-SMALL CELL LUNG CANCER
     Dosage: 1500 MG
     Route: 042
     Dates: start: 20180403, end: 20180403
  9. AZD6738 [Suspect]
     Active Substance: CERALASERTIB
     Indication: SQUAMOUS CELL CARCINOMA OF HEAD AND NECK
     Dosage: 240 MG
     Route: 048
     Dates: start: 20180321, end: 20180402
  10. VENTOLIN [Concomitant]
     Active Substance: ALBUTEROL SULFATE
     Indication: SEASONAL ALLERGY
     Route: 055
     Dates: start: 20180420
  11. MEDI4736 [Suspect]
     Active Substance: DURVALUMAB
     Indication: SQUAMOUS CELL CARCINOMA OF HEAD AND NECK
     Dosage: 1500 MG
     Route: 042
     Dates: start: 20180529, end: 20180529
  12. AZD6738 [Suspect]
     Active Substance: CERALASERTIB
     Indication: NON-SMALL CELL LUNG CANCER
     Dosage: 240 MG
     Route: 048
     Dates: start: 20180321, end: 20180402
  13. AZD6738 [Suspect]
     Active Substance: CERALASERTIB
     Indication: SQUAMOUS CELL CARCINOMA OF HEAD AND NECK
     Dosage: 240 MG
     Route: 048
     Dates: start: 20180417, end: 20180419
  14. AZD6738 [Suspect]
     Active Substance: CERALASERTIB
     Indication: SQUAMOUS CELL CARCINOMA OF HEAD AND NECK
     Dosage: 240 MG
     Route: 048
     Dates: start: 20180515, end: 20180528
  15. AZD6738 [Suspect]
     Active Substance: CERALASERTIB
     Indication: SQUAMOUS CELL CARCINOMA OF HEAD AND NECK
     Dosage: 240 MG
     Route: 048
     Dates: start: 20180421, end: 20180430
  16. MEDI4736 [Suspect]
     Active Substance: DURVALUMAB
     Indication: SQUAMOUS CELL CARCINOMA OF HEAD AND NECK
     Dosage: 1500 MG
     Route: 042
     Dates: start: 20180626, end: 20180626
  17. AZD6738 [Suspect]
     Active Substance: CERALASERTIB
     Indication: NON-SMALL CELL LUNG CANCER
     Dosage: 240 MG
     Route: 048
     Dates: start: 20180421, end: 20180430
  18. CETIRIZINE [Concomitant]
     Active Substance: CETIRIZINE HYDROCHLORIDE
     Indication: SEASONAL ALLERGY
     Route: 048
     Dates: start: 20180420
  19. AZD6738 [Suspect]
     Active Substance: CERALASERTIB
     Indication: NON-SMALL CELL LUNG CANCER
     Dosage: 240 MG
     Route: 048
     Dates: start: 20180417, end: 20180419
  20. AZD6738 [Suspect]
     Active Substance: CERALASERTIB
     Indication: NON-SMALL CELL LUNG CANCER
     Dosage: 240 MG
     Route: 048
     Dates: start: 20180612, end: 20180625
  21. IBUPROFEN. [Concomitant]
     Active Substance: IBUPROFEN
     Indication: ARTHRITIS
     Route: 048
     Dates: start: 20180710, end: 20180712
  22. LANSOPRAZOLE. [Concomitant]
     Active Substance: LANSOPRAZOLE
     Indication: PROPHYLAXIS
     Route: 048
     Dates: start: 20180710, end: 20180805
  23. MEDI4736 [Suspect]
     Active Substance: DURVALUMAB
     Indication: SQUAMOUS CELL CARCINOMA OF HEAD AND NECK
     Dosage: 1500 MG
     Route: 042
     Dates: start: 20180501, end: 20180501
  24. MEDI4736 [Suspect]
     Active Substance: DURVALUMAB
     Indication: NON-SMALL CELL LUNG CANCER
     Dosage: 1500 MG
     Route: 042
     Dates: start: 20180529, end: 20180529
  25. AZD6738 [Suspect]
     Active Substance: CERALASERTIB
     Indication: NON-SMALL CELL LUNG CANCER
     Dosage: 240 MG
     Route: 048
     Dates: start: 20180420, end: 20180420
  26. AZD6738 [Suspect]
     Active Substance: CERALASERTIB
     Indication: SQUAMOUS CELL CARCINOMA OF HEAD AND NECK
     Dosage: 240 MG
     Route: 048
     Dates: start: 20180612, end: 20180625
  27. IBUPROFEN. [Concomitant]
     Active Substance: IBUPROFEN
     Indication: ARTHRITIS
     Route: 048
     Dates: start: 20180713, end: 20180716

REACTIONS (1)
  - Autoimmune neuropathy [Not Recovered/Not Resolved]

NARRATIVE: CASE EVENT DATE: 20180720
